FAERS Safety Report 16217593 (Version 1)
Quarter: 2019Q2

REPORT INFORMATION
  Report Type: Spontaneous
  Country: US (occurrence: US)
  Receive Date: 20190419
  Receipt Date: 20190419
  Transmission Date: 20190711
  Serious: No
  Sender: FDA-Public Use
  Company Number: US-SA-2019SA105246

PATIENT
  Sex: Female

DRUGS (1)
  1. DUPIXENT [Suspect]
     Active Substance: DUPILUMAB
     Indication: ASTHMA
     Dosage: UNK
     Dates: start: 20190314

REACTIONS (4)
  - Dry skin [Unknown]
  - Rash [Unknown]
  - Skin irritation [Unknown]
  - Eczema [Unknown]

NARRATIVE: CASE EVENT DATE: 20190314
